FAERS Safety Report 4382007-6 (Version None)
Quarter: 2004Q2

REPORT INFORMATION
  Report Type: 
  Country: None (occurrence: None)
  Receive Date: 20040615
  Receipt Date: 20040526
  Transmission Date: 20050107
  Serious: Yes (Hospitalization)
  Sender: FDA-Public Use
  Company Number: F01200401242

PATIENT
  Age: 82 Year
  Sex: Female

DRUGS (8)
  1. ARIXTRA [Suspect]
     Indication: PHLEBOTHROMBOSIS
     Dosage: 2.5 MG, SUBCUTANEOUS
     Route: 058
     Dates: start: 20031009, end: 20031017
  2. PLAVIX [Concomitant]
  3. ASPIRIN [Concomitant]
  4. ATACAND [Concomitant]
  5. SELECTOL (CELIPROLOL HYDROCHLORIDE) [Concomitant]
  6. GLUCOPHAGE [Concomitant]
  7. PAROXETINE HCL [Concomitant]
  8. INSULINE (INSULIN) [Concomitant]

REACTIONS (2)
  - CEREBRAL THROMBOSIS [None]
  - FACIAL PALSY [None]
